FAERS Safety Report 13242719 (Version 2)
Quarter: 2017Q1

REPORT INFORMATION
  Report Type: Spontaneous
  Country: FR (occurrence: FR)
  Receive Date: 20170216
  Receipt Date: 20170217
  Transmission Date: 20170428
  Serious: Yes (Hospitalization, Other)
  Sender: FDA-Public Use
  Company Number: FR-PFIZER INC-2017067012

PATIENT
  Age: 89 Year
  Sex: Female

DRUGS (13)
  1. AUGMENTIN [Concomitant]
     Active Substance: AMOXICILLIN\CLAVULANATE POTASSIUM
     Dosage: 3 G, DAILY
     Dates: start: 20170103
  2. DOLIPRANE [Concomitant]
     Active Substance: ACETAMINOPHEN
     Dosage: 500 MG, UNK
  3. MATRIFEN [Concomitant]
     Active Substance: FENTANYL
     Dosage: 12 MICROGRAMS/HOUR
  4. IMOVANE [Concomitant]
     Active Substance: ZOPICLONE
     Dosage: 7.5 MG, UNK
  5. GALANTAMINE HYDROBROMIDE. [Concomitant]
     Active Substance: GALANTAMINE HYDROBROMIDE
     Dosage: 24 MG, UNK
  6. FRAGMINE [Suspect]
     Active Substance: DALTEPARIN SODIUM
     Indication: DEEP VEIN THROMBOSIS
     Dosage: 1 DF, 2X/DAY
     Route: 058
     Dates: start: 20170104, end: 20170109
  7. LAMOTRIGINE. [Concomitant]
     Active Substance: LAMOTRIGINE
  8. SERESTA [Concomitant]
     Active Substance: OXAZEPAM
  9. COUMADINE [Suspect]
     Active Substance: WARFARIN SODIUM
     Indication: DEEP VEIN THROMBOSIS
     Dosage: 4 MG, 1X/DAY
     Route: 048
     Dates: start: 20170104, end: 20170107
  10. ACTISKENAN [Concomitant]
     Active Substance: MORPHINE SULFATE
     Dosage: 5 MG, UNK
  11. UVEDOSE [Concomitant]
     Active Substance: CHOLECALCIFEROL
     Indication: ERYSIPELAS
     Dosage: 3 G, DAILY
     Dates: start: 20170103
  12. MOVICOL [Concomitant]
     Active Substance: POLYETHYLENE GLYCOL 3350\POTASSIUM CHLORIDE\SODIUM BICARBONATE\SODIUM CHLORIDE
  13. TIAPRIDAL [Concomitant]
     Active Substance: TIAPRIDE HYDROCHLORIDE

REACTIONS (3)
  - Subcutaneous haematoma [Recovering/Resolving]
  - Wound haemorrhage [Recovered/Resolved]
  - Fall [Unknown]

NARRATIVE: CASE EVENT DATE: 20170109
